FAERS Safety Report 5070257-5 (Version None)
Quarter: 2006Q3

REPORT INFORMATION
  Report Type: 
  Country: None (occurrence: None)
  Receive Date: 20060714
  Receipt Date: 20060410
  Transmission Date: 20061208
  Serious: No
  Sender: FDA-Public Use
  Company Number: 2006SP001625

PATIENT
  Age: 69 Year
  Sex: Male
  Weight: 89.8122 kg

DRUGS (8)
  1. LUNESTA [Suspect]
     Indication: INSOMNIA
     Dosage: SEE IMAGE
     Route: 048
     Dates: start: 20060110, end: 20060305
  2. LUNESTA [Suspect]
     Indication: INSOMNIA
     Dosage: SEE IMAGE
     Route: 048
     Dates: start: 20060306
  3. MONOPRIL [Concomitant]
  4. VALSARTAN [Concomitant]
  5. PIOGLITAZONE HCL [Concomitant]
  6. ATORVASTATIN CALCIUM [Concomitant]
  7. XENICAL [Concomitant]
  8. MERIDIA [Concomitant]

REACTIONS (3)
  - DRUG INEFFECTIVE [None]
  - HYPERTENSION [None]
  - MIDDLE INSOMNIA [None]
